FAERS Safety Report 16017278 (Version 1)
Quarter: 2019Q1

REPORT INFORMATION
  Report Type: Report from Study
  Country: US (occurrence: FR)
  Receive Date: 20190228
  Receipt Date: 20190228
  Transmission Date: 20190418
  Serious: Yes (Other)
  Sender: FDA-Public Use
  Company Number: US-HBP-2019FR018413

PATIENT
  Sex: Male

DRUGS (2)
  1. DERMOVAL                           /00008501/ [Concomitant]
     Active Substance: CLOBETASOL PROPIONATE
  2. VALCHLOR [Suspect]
     Active Substance: MECHLORETHAMINE
     Indication: MYCOSIS FUNGOIDES
     Dosage: UNK
     Dates: start: 20171215, end: 20180829

REACTIONS (2)
  - Mycosis fungoides refractory [Unknown]
  - Drug ineffective [Unknown]
